FAERS Safety Report 6818758-0 (Version None)
Quarter: 2010Q2

REPORT INFORMATION
  Report Type: 
  Country: None (occurrence: None)
  Receive Date: 20100630
  Receipt Date: 20100423
  Transmission Date: 20101027
  Serious: Yes (Hospitalization)
  Sender: FDA-Public Use
  Company Number: NL_TT_10_00001/NL-NLSPPROD-NLSP0000

PATIENT
  Sex: Female
  Weight: 66 kg

DRUGS (5)
  1. DEXRAZOXANE [Suspect]
     Indication: EXTRAVASATION
  2. DIMETHYL SULFOXIDE [Concomitant]
  3. EPIRUBICIN [Concomitant]
  4. FLUOROURACIL [Concomitant]
  5. CYCLOPHOSPHAMIDE [Concomitant]

REACTIONS (4)
  - DRUG ADMINISTRATION ERROR [None]
  - DRUG INEFFECTIVE [None]
  - DRUG INTERACTION [None]
  - SKIN GRAFT [None]
